FAERS Safety Report 6608856-9 (Version None)
Quarter: 2010Q1

REPORT INFORMATION
  Report Type: 
  Country: None (occurrence: None)
  Receive Date: 20100225
  Receipt Date: 20100225
  Transmission Date: 20100710
  Serious: Yes (Hospitalization)
  Sender: FDA-Public Use
  Company Number: None

PATIENT
  Age: 73 Year
  Sex: Male

DRUGS (1)
  1. DOCETAXEL [Suspect]
     Indication: SQUAMOUS CELL CARCINOMA
     Dosage: 50 MG ONCE IV
     Route: 042
     Dates: start: 20091006, end: 20091006

REACTIONS (3)
  - RESPIRATORY ARREST [None]
  - RESPIRATORY DEPRESSION [None]
  - RESPIRATORY FAILURE [None]
